FAERS Safety Report 6475730-0 (Version None)
Quarter: 2009Q4

REPORT INFORMATION
  Report Type: 
  Country: None (occurrence: None)
  Receive Date: 20091204
  Receipt Date: 20090105
  Transmission Date: 20100525
  Serious: No
  Sender: FDA-Public Use
  Company Number: US-AMGEN-KDL326850

PATIENT
  Age: 45 Year
  Sex: Female

DRUGS (7)
  1. ENBREL [Suspect]
     Indication: PSORIASIS
     Dates: start: 20080101, end: 20080701
  2. VENLAFAXINE [Suspect]
  3. LEVOTHYROXINE SODIUM [Suspect]
  4. EZETIMIBE [Suspect]
  5. GLIMEPIRIDE [Suspect]
  6. HUMIRA [Suspect]
     Route: 058
     Dates: start: 20080701
  7. SERTRALINE HCL [Suspect]

REACTIONS (1)
  - HEPATIC ENZYME INCREASED [None]
